FAERS Safety Report 14522510 (Version 1)
Quarter: 2018Q1

REPORT INFORMATION
  Report Type: Spontaneous
  Country: AU (occurrence: AU)
  Receive Date: 20180212
  Receipt Date: 20180212
  Transmission Date: 20180509
  Serious: Yes (Death)
  Sender: FDA-Public Use
  Company Number: AU-ACTELION-A-NJ2018-167559

PATIENT
  Age: 20 Year
  Sex: Female

DRUGS (6)
  1. VENTAVIS [Suspect]
     Active Substance: ILOPROST
     Indication: PULMONARY ARTERIAL HYPERTENSION
     Dosage: UNK
     Route: 055
     Dates: start: 20180130
  2. MACITENTAN [Concomitant]
     Active Substance: MACITENTAN
     Indication: INVESTIGATION
  3. VENTAVIS [Suspect]
     Active Substance: ILOPROST
     Dosage: 2.5 MCG, 6-9 TIMES DAILY
     Route: 055
     Dates: start: 20180206
  4. MACITENTAN [Concomitant]
     Active Substance: MACITENTAN
     Indication: INVESTIGATION
  5. FUROSEMIDE. [Concomitant]
     Active Substance: FUROSEMIDE
  6. SILDENAFIL. [Concomitant]
     Active Substance: SILDENAFIL

REACTIONS (3)
  - Pulmonary arterial hypertension [Fatal]
  - Disease progression [Fatal]
  - Cardiac arrest [Fatal]
